FAERS Safety Report 9989884 (Version 1)
Quarter: 2014Q1

REPORT INFORMATION
  Report Type: Spontaneous
  Country: US (occurrence: None)
  Receive Date: 20140123
  Receipt Date: 20140123
  Transmission Date: 20141002
  Serious: Yes (Hospitalization)
  Sender: FDA-Public Use
  Company Number: UTC-037866

PATIENT
  Age: 49 Year
  Sex: Female

DRUGS (3)
  1. REMODULIN [Suspect]
     Indication: COR PULMONALE CHRONIC
     Dosage: 72 UG/KG (0.05 UG/KG, 1 IN 3. MIN),SUBCUTANEOUS
     Route: 058
     Dates: start: 20091002
  2. ADCIRCA (TADALAFIL)(UNKNOWN) [Concomitant]
  3. TRACLEER (BOSENTAN)(UNKNOWN) [Concomitant]

REACTIONS (1)
  - Infusion site reaction [None]
